FAERS Safety Report 21298545 (Version 1)
Quarter: 2022Q3

REPORT INFORMATION
  Report Type: Spontaneous
  Country: CA (occurrence: CA)
  Receive Date: 20220906
  Receipt Date: 20220906
  Transmission Date: 20221027
  Serious: Yes (Death, Other)
  Sender: FDA-Public Use
  Company Number: CA-PFIZER INC-202201125852

PATIENT
  Sex: Female

DRUGS (1)
  1. FILGRASTIM [Suspect]
     Active Substance: FILGRASTIM
     Indication: Colon cancer
     Dosage: UNK
     Route: 058

REACTIONS (2)
  - Malignant neoplasm progression [Fatal]
  - Off label use [Unknown]
